FAERS Safety Report 6668879-0 (Version None)
Quarter: 2010Q2

REPORT INFORMATION
  Report Type: 
  Country: None (occurrence: None)
  Receive Date: 20100406
  Receipt Date: 20100326
  Transmission Date: 20101027
  Serious: Yes (Other)
  Sender: FDA-Public Use
  Company Number: JP-ROCHE-694946

PATIENT
  Sex: Female
  Weight: 57 kg

DRUGS (38)
  1. TOCILIZUMAB [Suspect]
     Indication: RHEUMATOID ARTHRITIS
     Route: 041
     Dates: start: 20080618, end: 20080618
  2. TOCILIZUMAB [Suspect]
     Route: 041
     Dates: start: 20080716, end: 20080716
  3. TOCILIZUMAB [Suspect]
     Route: 041
     Dates: start: 20080813, end: 20080813
  4. TOCILIZUMAB [Suspect]
     Route: 041
     Dates: start: 20080910, end: 20080910
  5. TOCILIZUMAB [Suspect]
     Route: 041
     Dates: start: 20081119, end: 20081119
  6. TOCILIZUMAB [Suspect]
     Route: 041
     Dates: start: 20081217, end: 20081217
  7. TOCILIZUMAB [Suspect]
     Route: 041
     Dates: start: 20090114, end: 20090114
  8. TOCILIZUMAB [Suspect]
     Route: 041
     Dates: start: 20090218, end: 20090218
  9. TOCILIZUMAB [Suspect]
     Route: 041
     Dates: start: 20090318, end: 20090318
  10. TOCILIZUMAB [Suspect]
     Route: 041
     Dates: start: 20090415, end: 20090415
  11. TOCILIZUMAB [Suspect]
     Route: 041
     Dates: start: 20090520, end: 20090520
  12. TOCILIZUMAB [Suspect]
     Route: 041
     Dates: start: 20090617
  13. RHEUMATREX [Concomitant]
     Route: 048
     Dates: end: 20081013
  14. RHEUMATREX [Concomitant]
     Route: 048
     Dates: start: 20081024
  15. PREDNISOLONE [Concomitant]
     Dosage: FORM: PERORAL AGENT
     Route: 048
  16. CONIEL [Concomitant]
     Route: 048
  17. CANDESARTAN CILEXETIL [Concomitant]
     Route: 048
  18. MOBIC [Concomitant]
     Route: 048
  19. FOLIC ACID [Concomitant]
     Route: 048
  20. ONEALFA [Concomitant]
     Dosage: FORM: PERORAL AGENT
     Route: 048
  21. LIPITOR [Concomitant]
     Route: 048
  22. LANSOPRAZOLE [Concomitant]
     Route: 048
  23. ALENDRONATE SODIUM [Concomitant]
     Route: 048
  24. MAGLAX [Concomitant]
     Dosage: FORM: PERORAL AGENT
     Route: 048
  25. VOLTAREN [Concomitant]
     Route: 061
     Dates: start: 20080618, end: 20081107
  26. KETOPROFEN [Concomitant]
     Dosage: FORM: TAPE
     Route: 061
     Dates: start: 20080618, end: 20081029
  27. LAMISIL [Concomitant]
     Route: 003
  28. MUCOSTA [Concomitant]
     Route: 048
  29. METHYCOBAL [Concomitant]
     Route: 048
     Dates: start: 20080910, end: 20081216
  30. FERO-GRADUMET [Concomitant]
     Route: 048
     Dates: start: 20080924, end: 20081014
  31. CINAL [Concomitant]
     Dosage: FORM: PERORAL AGENT
     Route: 048
     Dates: start: 20080924, end: 20081014
  32. LOXONIN [Concomitant]
     Dosage: FORM: TAPE, DOSAGE ADJUSTED
     Route: 061
     Dates: start: 20081030, end: 20081216
  33. LORCAM [Concomitant]
     Dosage: TAKEN AS NEEDED 4 MG A DAY
     Route: 048
     Dates: start: 20081017, end: 20081216
  34. LENDORMIN [Concomitant]
     Route: 048
     Dates: start: 20081103, end: 20081216
  35. PL [Concomitant]
     Route: 048
     Dates: start: 20081225, end: 20081230
  36. RHEUMATREX [Concomitant]
     Route: 048
     Dates: end: 20091013
  37. RHEUMATREX [Concomitant]
     Route: 048
     Dates: start: 20081024, end: 20081216
  38. RHEUMATREX [Concomitant]
     Route: 048
     Dates: start: 20081217

REACTIONS (1)
  - GLOMERULONEPHRITIS ACUTE [None]
